FAERS Safety Report 19154245 (Version 1)
Quarter: 2021Q2

REPORT INFORMATION
  Report Type: Spontaneous
  Country: US (occurrence: US)
  Receive Date: 20210419
  Receipt Date: 20210419
  Transmission Date: 20210717
  Serious: No
  Sender: FDA-Public Use
  Company Number: US-TEVA-2021-US-1900455

PATIENT
  Age: 70 Year
  Sex: Female

DRUGS (1)
  1. ALPRAZOLAM. [Suspect]
     Active Substance: ALPRAZOLAM
     Route: 065

REACTIONS (6)
  - Gait disturbance [Unknown]
  - Vision blurred [Unknown]
  - Eye irritation [Unknown]
  - Urticaria [Unknown]
  - Pruritus [Unknown]
  - Dizziness [Unknown]
